FAERS Safety Report 26075458 (Version 1)
Quarter: 2025Q4

REPORT INFORMATION
  Report Type: Other
  Country: US (occurrence: US)
  Receive Date: 20251121
  Receipt Date: 20251121
  Transmission Date: 20260119
  Serious: Yes (Hospitalization)
  Sender: VERASTEM
  Company Number: US-VERASTEM-251024US-AFCPK-00746

PATIENT

DRUGS (2)
  1. AVMAPKI FAKZYNJA CO-PACK [Suspect]
     Active Substance: AVUTOMETINIB POTASSIUM\DEFACTINIB HYDROCHLORIDE
     Indication: Ovarian cancer
     Dosage: AS DIRECTED PER DOSING CARD
     Route: 048
     Dates: start: 20250901
  2. AVMAPKI FAKZYNJA CO-PACK [Suspect]
     Active Substance: AVUTOMETINIB POTASSIUM\DEFACTINIB HYDROCHLORIDE
     Dosage: AVMAPKI 3 CAPSULES ON DAYS 1 AND 4, AND FAKZYNJA 1 TABLET ONCE A DAY ON WEEKS 1,2 AND 3
     Route: 048

REACTIONS (1)
  - Urinary tract infection [Recovering/Resolving]

NARRATIVE: CASE EVENT DATE: 20251001
